FAERS Safety Report 9940746 (Version 1)
Quarter: 2014Q1

REPORT INFORMATION
  Report Type: Spontaneous
  Country: CA (occurrence: CA)
  Receive Date: 20140303
  Receipt Date: 20140303
  Transmission Date: 20141002
  Serious: Yes (Hospitalization, Other)
  Sender: FDA-Public Use
  Company Number: CA-NOVOPROD-400862

PATIENT
  Age: 40 Year
  Sex: Male
  Weight: 183 kg

DRUGS (6)
  1. VICTOZA [Suspect]
     Indication: PRODUCT USED FOR UNKNOWN INDICATION
     Dosage: 1.8 MG, QD (1 EVERY 1 DAY)
     Route: 058
  2. ASAPHEN [Concomitant]
  3. CRESTOR [Concomitant]
     Dosage: UNK
  4. METFORMIN [Concomitant]
  5. OMEPRAZOLE [Concomitant]
  6. RAMIPRIL [Concomitant]

REACTIONS (6)
  - Increased appetite [Unknown]
  - Paradoxical drug reaction [Unknown]
  - Weight increased [Unknown]
  - Blood glucose increased [Unknown]
  - Diarrhoea [Unknown]
  - Glycosylated haemoglobin increased [Unknown]
